FAERS Safety Report 8088984-4 (Version None)
Quarter: 2012Q1

REPORT INFORMATION
  Report Type: 
  Country: None (occurrence: None)
  Receive Date: 20120128
  Receipt Date: 20110701
  Transmission Date: 20120608
  Serious: No
  Sender: FDA-Public Use
  Company Number: US-ABBOTT-11P-163-0837224-00

PATIENT
  Sex: Male

DRUGS (1)
  1. HUMIRA [Suspect]
     Indication: RHEUMATOID ARTHRITIS
     Dosage: 11 MAY 2011 SHIPMENT (31 MAY 2011)
     Route: 058
     Dates: start: 20110517

REACTIONS (3)
  - DIARRHOEA [None]
  - CONSTIPATION [None]
  - DRUG INEFFECTIVE [None]
